FAERS Safety Report 6880026-9 (Version None)
Quarter: 2010Q2

REPORT INFORMATION
  Report Type: 
  Country: None (occurrence: None)
  Receive Date: 20100630
  Receipt Date: 20091119
  Transmission Date: 20101027
  Serious: Yes (Other)
  Sender: FDA-Public Use
  Company Number: 2009300573

PATIENT
  Age: 10 Year
  Sex: Male
  Weight: 38.1 kg

DRUGS (1)
  1. ZITHROMAX [Suspect]
     Indication: COUGH
     Dosage: ORAL
     Route: 048
     Dates: start: 20091118, end: 20091118

REACTIONS (2)
  - BLISTER [None]
  - HYPERSENSITIVITY [None]
